FAERS Safety Report 9355424 (Version 1)
Quarter: 2013Q2

REPORT INFORMATION
  Report Type: Spontaneous
  Country: US (occurrence: US)
  Receive Date: 20130619
  Receipt Date: 20130619
  Transmission Date: 20140414
  Serious: Yes (Other)
  Sender: FDA-Public Use
  Company Number: US-BAYER-2013-075092

PATIENT
  Age: 34 Year
  Sex: Female
  Weight: 122.45 kg

DRUGS (2)
  1. YASMIN [Suspect]
  2. LEVOXYL [Concomitant]

REACTIONS (2)
  - Thrombophlebitis superficial [None]
  - Deep vein thrombosis [None]
